FAERS Safety Report 8174572-8 (Version None)
Quarter: 2012Q1

REPORT INFORMATION
  Report Type: 
  Country: None (occurrence: None)
  Receive Date: 20120227
  Receipt Date: 20120213
  Transmission Date: 20120608
  Serious: Yes (Other)
  Sender: FDA-Public Use
  Company Number: 1000028403

PATIENT
  Sex: Female

DRUGS (1)
  1. VIIBRYD [Suspect]

REACTIONS (12)
  - DIARRHOEA [None]
  - DISSOCIATION [None]
  - DIZZINESS [None]
  - INSOMNIA [None]
  - MENTAL IMPAIRMENT [None]
  - NAUSEA [None]
  - INCREASED APPETITE [None]
  - GASTROOESOPHAGEAL REFLUX DISEASE [None]
  - SUICIDAL IDEATION [None]
  - HYPOAESTHESIA [None]
  - MUSCLE SPASMS [None]
  - ABNORMAL DREAMS [None]
